FAERS Safety Report 9920731 (Version 1)
Quarter: 2014Q1

REPORT INFORMATION
  Report Type: Spontaneous
  Country: US (occurrence: US)
  Receive Date: 20140224
  Receipt Date: 20140224
  Transmission Date: 20141002
  Serious: No
  Sender: FDA-Public Use
  Company Number: US-NOVEN-14US008708

PATIENT
  Age: 71 Year
  Sex: Female

DRUGS (2)
  1. MINIVELLE [Suspect]
     Indication: HOT FLUSH
     Dosage: 0.1 MG, UNK
     Route: 062
     Dates: start: 2013
  2. CREAM E45 [Concomitant]
     Indication: MENOPAUSE
     Route: 061

REACTIONS (6)
  - Pruritus [Recovered/Resolved]
  - Erythema [Recovered/Resolved]
  - Application site urticaria [Recovered/Resolved]
  - Application site inflammation [Recovered/Resolved]
  - Application site vesicles [Recovered/Resolved]
  - Drug dose omission [Recovered/Resolved]
